FAERS Safety Report 19974217 (Version 2)
Quarter: 2021Q4

REPORT INFORMATION
  Report Type: Spontaneous
  Country: PT (occurrence: PT)
  Receive Date: 20211020
  Receipt Date: 20211201
  Transmission Date: 20220303
  Serious: Yes (Hospitalization)
  Sender: FDA-Public Use
  Company Number: PT-LUPIN PHARMACEUTICALS INC.-2021-20061

PATIENT
  Age: 26 Year
  Sex: Female

DRUGS (1)
  1. MORPHINE [Suspect]
     Active Substance: MORPHINE
     Indication: Pain management
     Dosage: 8 MILLIGRAM (8MG BOLUS OF EPIDURAL MORPHINE (OVERDOSE) WAS MISTAKENLY ADMINISTERED INSTEAD OF 2MG)
     Route: 008

REACTIONS (1)
  - Accidental overdose [Unknown]
